FAERS Safety Report 5809832-6 (Version None)
Quarter: 2008Q3

REPORT INFORMATION
  Report Type: 
  Country: None (occurrence: None)
  Receive Date: 20080715
  Receipt Date: 20080709
  Transmission Date: 20090109
  Serious: Yes (Disabling, Other)
  Sender: FDA-Public Use
  Company Number: CH-ASTRAZENECA-2008PK01508

PATIENT
  Age: 22687 Day
  Sex: Male
  Weight: 85 kg

DRUGS (5)
  1. SCANDICAIN [Suspect]
     Indication: VITRECTOMY
     Route: 056
     Dates: start: 20070530, end: 20070530
  2. LISITRIL 12/5 [Concomitant]
     Indication: DIABETES MELLITUS
  3. AMARYL 3 MG [Concomitant]
     Indication: DIABETES MELLITUS
  4. AMLOPIN 10 [Concomitant]
     Indication: HYPERTENSION
  5. ASPIRIN [Concomitant]
     Indication: PLATELET AGGREGATION INHIBITION

REACTIONS (1)
  - RETINAL ARTERY OCCLUSION [None]
